FAERS Safety Report 24136239 (Version 2)
Quarter: 2024Q3

REPORT INFORMATION
  Report Type: Spontaneous
  Country: US (occurrence: US)
  Receive Date: 20240725
  Receipt Date: 20240802
  Transmission Date: 20241017
  Serious: No
  Sender: PFIZER
  Company Number: US-PFIZER INC-PV202400096367

PATIENT
  Age: 29 Year
  Sex: Female

DRUGS (1)
  1. METHOTREXATE SODIUM [Suspect]
     Active Substance: METHOTREXATE SODIUM
     Dosage: UNK, WEEKLY

REACTIONS (8)
  - Malaise [Unknown]
  - Nausea [Unknown]
  - Migraine [Unknown]
  - Fatigue [Unknown]
  - COVID-19 [Unknown]
  - Vertigo [Unknown]
  - Paraesthesia [Unknown]
  - Muscle spasms [Unknown]

NARRATIVE: CASE EVENT DATE: 20240723
